FAERS Safety Report 8898576 (Version 2)
Quarter: 2013Q1

REPORT INFORMATION
  Report Type: Spontaneous
  Country: US (occurrence: US)
  Receive Date: 20121109
  Receipt Date: 20130110
  Transmission Date: 20140127
  Serious: Yes (Hospitalization)
  Sender: FDA-Public Use
  Company Number: US-BAXTER-2012BAX020399

PATIENT
  Sex: Female

DRUGS (4)
  1. DIANEAL LOW CALCIUM [Suspect]
     Indication: PERITONEAL DIALYSIS
     Dosage: 10 L+1.5L LAST FILL
     Route: 033
     Dates: start: 20120824
  2. DIANEAL LOW CALCIUM [Suspect]
     Route: 033
  3. DIANEAL LOW CALCIUM [Suspect]
     Indication: PERITONEAL DIALYSIS
     Dosage: 10 L+1.5L LAST FILL
     Route: 033
     Dates: start: 20120824
  4. DIANEAL LOW CALCIUM [Suspect]
     Route: 033

REACTIONS (2)
  - Ankle fracture [Recovering/Resolving]
  - Visual impairment [Unknown]
